FAERS Safety Report 17552996 (Version 1)
Quarter: 2020Q1

REPORT INFORMATION
  Report Type: Report from Study
  Country: None (occurrence: US)
  Receive Date: 20200318
  Receipt Date: 20200318
  Transmission Date: 20200409
  Serious: Yes (Other)
  Sender: FDA-Public Use
  Company Number: US-ABBVIE-20K-163-3324246-00

PATIENT
  Age: 61 Year
  Sex: Male
  Weight: 85.81 kg

DRUGS (4)
  1. RITUXAN [Suspect]
     Active Substance: RITUXIMAB
     Indication: WALDENSTROM^S MACROGLOBULINAEMIA
     Dosage: ADMINISTERED ONCE A MONTH
     Route: 042
     Dates: start: 20191125
  2. VALTREX [Concomitant]
     Active Substance: VALACYCLOVIR HYDROCHLORIDE
     Indication: HERPES ZOSTER IMMUNISATION
     Route: 048
     Dates: start: 201911
  3. VENCLEXTA [Suspect]
     Active Substance: VENETOCLAX
     Indication: WALDENSTROM^S MACROGLOBULINAEMIA
     Dosage: FOUR 100 MG TABLETS DAILY IN THE MORNING
     Route: 048
     Dates: start: 20191206
  4. VITAMIN B12 [Concomitant]
     Active Substance: CYANOCOBALAMIN
     Indication: IMMUNOMODULATORY THERAPY
     Dates: start: 20200311

REACTIONS (7)
  - Sinusitis [Not Recovered/Not Resolved]
  - Cough [Not Recovered/Not Resolved]
  - Myeloproliferative neoplasm [Not Recovered/Not Resolved]
  - Off label use [Unknown]
  - Off label use [Unknown]
  - Pyrexia [Not Recovered/Not Resolved]
  - Nausea [Recovering/Resolving]

NARRATIVE: CASE EVENT DATE: 201912
